FAERS Safety Report 5720115-5 (Version None)
Quarter: 2008Q2

REPORT INFORMATION
  Report Type: 
  Country: None (occurrence: None)
  Receive Date: 20080428
  Receipt Date: 20080114
  Transmission Date: 20081010
  Serious: No
  Sender: FDA-Public Use
  Company Number: US-AMGEN-US260539

PATIENT
  Sex: Female

DRUGS (7)
  1. SENSIPAR [Suspect]
     Indication: HYPERPARATHYROIDISM SECONDARY
     Route: 048
     Dates: start: 20060101
  2. EPOGEN [Concomitant]
     Indication: RENAL FAILURE CHRONIC
     Route: 042
  3. VENOFER [Concomitant]
     Route: 042
  4. ZEMPLAR [Concomitant]
     Route: 042
  5. NORVASC [Concomitant]
     Route: 048
  6. RENAGEL [Concomitant]
     Route: 048
  7. COREG [Concomitant]
     Route: 048

REACTIONS (1)
  - FREQUENT BOWEL MOVEMENTS [None]
